FAERS Safety Report 15124385 (Version 1)
Quarter: 2018Q3

REPORT INFORMATION
  Report Type: Spontaneous
  Country: GB (occurrence: GB)
  Receive Date: 20180710
  Receipt Date: 20180710
  Transmission Date: 20181010
  Serious: Yes (Death, Hospitalization)
  Sender: FDA-Public Use
  Company Number: GB-009507513-1807GBR002813

PATIENT
  Age: 75 Year
  Sex: Male

DRUGS (1)
  1. KEYTRUDA [Suspect]
     Active Substance: PEMBROLIZUMAB
     Indication: DISEASE PROGRESSION
     Dosage: UNK, Q3W

REACTIONS (3)
  - Respiratory disorder [Fatal]
  - Influenza [Unknown]
  - Pneumonitis [Unknown]
